FAERS Safety Report 9554351 (Version 1)
Quarter: 2013Q3

REPORT INFORMATION
  Report Type: Spontaneous
  Country: GB (occurrence: GB)
  Receive Date: 20130925
  Receipt Date: 20130925
  Transmission Date: 20140515
  Serious: Yes (Death, Other)
  Sender: FDA-Public Use
  Company Number: GB-TEVA-433154ISR

PATIENT
  Age: 86 Year
  Sex: Female
  Weight: 54 kg

DRUGS (6)
  1. WARFARIN [Suspect]
     Indication: ATRIAL FIBRILLATION
     Route: 048
  2. AMIODARONE [Concomitant]
  3. PERINDOPRIL [Concomitant]
  4. SIMVASTATIN [Concomitant]
  5. BISOPROLOL [Concomitant]
  6. DIGOXIN [Concomitant]

REACTIONS (2)
  - Subdural haematoma [Fatal]
  - Syncope [Unknown]
